FAERS Safety Report 7030243-2 (Version None)
Quarter: 2010Q4

REPORT INFORMATION
  Report Type: 
  Country: None (occurrence: None)
  Receive Date: 20101006
  Receipt Date: 20100927
  Transmission Date: 20110411
  Serious: Yes (Hospitalization)
  Sender: FDA-Public Use
  Company Number: DE-ASTRAZENECA-2010SE45661

PATIENT
  Age: 89 Year
  Sex: Female
  Weight: 86 kg

DRUGS (9)
  1. ATACAND [Suspect]
     Indication: HYPERTENSION
     Route: 048
     Dates: start: 20080701, end: 20081014
  2. ATACAND [Suspect]
     Route: 048
     Dates: start: 20081015
  3. PENTAERYTHRITOL TETRANITRATE [Suspect]
     Indication: ANGINA PECTORIS
     Route: 065
  4. TORASEMIDE [Suspect]
     Indication: HYPERTENSION
     Route: 048
  5. ACETYLSALICYLSAEURE [Concomitant]
     Indication: CEREBROVASCULAR ACCIDENT
     Route: 048
  6. NITROFURANTOIN [Concomitant]
     Indication: URINARY INCONTINENCE
     Route: 048
  7. GLIBENCLAMIDE [Concomitant]
     Indication: TYPE 2 DIABETES MELLITUS
     Route: 048
  8. ZOLPIDEM [Concomitant]
     Indication: SLEEP DISORDER
     Route: 048
  9. NITRO-SPRAY [Concomitant]
     Indication: ANGINA PECTORIS
     Dosage: 1 PUFF = 0.4 MG ISOSORBIDDINITRAT, AS REQUIRED 1 PUFF
     Route: 060

REACTIONS (1)
  - SYNCOPE [None]
